FAERS Safety Report 6540175-1 (Version None)
Quarter: 2010Q1

REPORT INFORMATION
  Report Type: 
  Country: None (occurrence: None)
  Receive Date: 20100115
  Receipt Date: 20100105
  Transmission Date: 20100710
  Serious: Yes (Hospitalization)
  Sender: FDA-Public Use
  Company Number: GB-WATSON-2010-00120

PATIENT
  Age: 35 Year
  Sex: Male

DRUGS (5)
  1. METOCLOPRAMIDE HYDROCHLORIDE [Suspect]
     Indication: VOMITING
     Dosage: UNK
  2. MORPHINE SULFATE INJ [Suspect]
     Indication: PROCEDURAL PAIN
     Dosage: UNK
  3. PROCHLORPERAZINE EDISYLATE [Suspect]
     Indication: VOMITING
     Dosage: UNK
  4. ONDANSETRON [Suspect]
     Indication: VOMITING
     Dosage: UNK
  5. FENTANYL [Concomitant]
     Indication: ANALGESIC THERAPY
     Dosage: UNK

REACTIONS (9)
  - COLLAPSE OF LUNG [None]
  - DIAPHRAGMATIC HERNIA [None]
  - DIAPHRAGMATIC RUPTURE [None]
  - HAEMATOMA [None]
  - INFUSION SITE EXTRAVASATION [None]
  - PLEURAL EFFUSION [None]
  - RESPIRATORY DISTRESS [None]
  - RESPIRATORY FAILURE [None]
  - VOMITING [None]
